FAERS Safety Report 5511134-2 (Version None)
Quarter: 2007Q4

REPORT INFORMATION
  Report Type: 
  Country: None (occurrence: None)
  Receive Date: 20071107
  Receipt Date: 20071023
  Transmission Date: 20080405
  Serious: Yes (Congenital Anomaly)
  Sender: FDA-Public Use
  Company Number: SPV1-2007-04798

PATIENT
  Age: 26 Year
  Sex: Female

DRUGS (1)
  1. CARBATROL [Suspect]
     Indication: EPILEPSY

REACTIONS (5)
  - CAESAREAN SECTION [None]
  - CONGENITAL ANOMALY [None]
  - CYANOSIS NEONATAL [None]
  - DRUG EXPOSURE DURING PREGNANCY [None]
  - TRANSPOSITION OF THE GREAT VESSELS [None]
